FAERS Safety Report 22236936 (Version 1)
Quarter: 2023Q2

REPORT INFORMATION
  Report Type: Spontaneous
  Country: US (occurrence: US)
  Receive Date: 20230420
  Receipt Date: 20230420
  Transmission Date: 20230722
  Serious: No
  Sender: FDA-Public Use
  Company Number: US-AMGEN-USASP2023053500

PATIENT
  Age: 43 Year
  Sex: Female

DRUGS (2)
  1. AMJEVITA [Suspect]
     Active Substance: ADALIMUMAB-ATTO
     Indication: Product used for unknown indication
     Dosage: 40 MILLIGRAM
     Route: 058
  2. AMJEVITA [Suspect]
     Active Substance: ADALIMUMAB-ATTO
     Dosage: UNK
     Route: 058

REACTIONS (1)
  - Drug dose omission by device [Unknown]

NARRATIVE: CASE EVENT DATE: 20230324
